FAERS Safety Report 8814189 (Version 4)
Quarter: 2013Q2

REPORT INFORMATION
  Report Type: Report from Study
  Country: CA (occurrence: CA)
  Receive Date: 20120928
  Receipt Date: 20130513
  Transmission Date: 20140414
  Serious: Yes (Death, Hospitalization, Other)
  Sender: FDA-Public Use
  Company Number: CA-JNJFOC-20120911141

PATIENT
  Age: 62 Year
  Sex: Male
  Weight: 97.1 kg

DRUGS (2)
  1. INFLIXIMAB, RECOMBINANT [Suspect]
     Indication: PSORIASIS
     Route: 042
     Dates: start: 200302, end: 200407
  2. ADALIMUMAB [Concomitant]
     Dates: start: 200807

REACTIONS (3)
  - Respiratory failure [Fatal]
  - Renal failure [Unknown]
  - Renal cancer [Unknown]
